FAERS Safety Report 8402861-8 (Version None)
Quarter: 2012Q2

REPORT INFORMATION
  Report Type: 
  Country: None (occurrence: None)
  Receive Date: 20120601
  Receipt Date: 20120523
  Transmission Date: 20120825
  Serious: Yes (Hospitalization)
  Sender: FDA-Public Use
  Company Number: FR-VERTEX PHARMACEUTICALS INC.-000000000000000571

PATIENT
  Sex: Male
  Weight: 67 kg

DRUGS (4)
  1. COPEGUS [Concomitant]
     Indication: HEPATITIS C
     Dosage: DOSAGE FORM: TABLET, 2 TABLETS ON THE MORNING, 3 TABLETS ON THE EVENING
     Route: 048
     Dates: start: 20120125
  2. EPREX [Concomitant]
     Indication: ANAEMIA
     Route: 058
     Dates: start: 20120301
  3. PEGASYS [Concomitant]
     Indication: HEPATITIS C
     Route: 058
     Dates: start: 20120125
  4. INCIVO [Suspect]
     Indication: PRODUCT USED FOR UNKNOWN INDICATION
     Dosage: DOSAGE FORM: TABLET
     Route: 048
     Dates: start: 20120125, end: 20120413

REACTIONS (2)
  - OFF LABEL USE [None]
  - ERYTHEMA MULTIFORME [None]
